FAERS Safety Report 5247999-1 (Version None)
Quarter: 2007Q1

REPORT INFORMATION
  Report Type: 
  Country: None (occurrence: None)
  Receive Date: 20070226
  Receipt Date: 20070226
  Transmission Date: 20070707
  Serious: Yes (Death, Life-Threatening, Hospitalization)
  Sender: FDA-Public Use
  Company Number: None

PATIENT
  Age: 79 Year
  Sex: Female
  Weight: 41.2773 kg

DRUGS (1)
  1. SULFAMETHOXAZOLE/TMP DS TAB [Suspect]
     Indication: URINARY TRACT INFECTION
     Dosage: 1 PILL 2X DAILY PO
     Route: 048
     Dates: start: 20061013, end: 20061023

REACTIONS (3)
  - DIARRHOEA [None]
  - HALLUCINATION [None]
  - MUSCULAR WEAKNESS [None]
